FAERS Safety Report 5677428-5 (Version None)
Quarter: 2008Q1

REPORT INFORMATION
  Report Type: 
  Country: None (occurrence: None)
  Receive Date: 20080324
  Receipt Date: 20080319
  Transmission Date: 20080703
  Serious: Yes (Life-Threatening)
  Sender: FDA-Public Use
  Company Number: DE-BRISTOL-MYERS SQUIBB COMPANY-14121438

PATIENT
  Age: 80 Year
  Sex: Female
  Weight: 45 kg

DRUGS (1)
  1. LITALIR CAPS [Suspect]
     Indication: POLYCYTHAEMIA VERA
     Dosage: DOSAGE FORM = CAPS

REACTIONS (11)
  - ALANINE AMINOTRANSFERASE INCREASED [None]
  - ASPARTATE AMINOTRANSFERASE INCREASED [None]
  - BASOPHIL PERCENTAGE INCREASED [None]
  - BLOOD BILIRUBIN INCREASED [None]
  - GRANULOCYTE COUNT INCREASED [None]
  - HAEMATOCRIT INCREASED [None]
  - HEPATIC ENZYME INCREASED [None]
  - LEUKOPENIA [None]
  - LYMPHOCYTE COUNT DECREASED [None]
  - MONOCYTE COUNT DECREASED [None]
  - THROMBOCYTOPENIA [None]
